FAERS Safety Report 9544589 (Version 1)
Quarter: 2013Q3

REPORT INFORMATION
  Report Type: Spontaneous
  Country: US (occurrence: US)
  Receive Date: 20130923
  Receipt Date: 20130923
  Transmission Date: 20140515
  Serious: No
  Sender: FDA-Public Use
  Company Number: US-GLAXOSMITHKLINE-A0995717A

PATIENT
  Age: 80 Year
  Sex: Female

DRUGS (2)
  1. ABREVA [Suspect]
     Indication: ORAL HERPES
     Dates: start: 20120820
  2. COUMADIN [Concomitant]

REACTIONS (8)
  - Sensory disturbance [Not Recovered/Not Resolved]
  - Feeling abnormal [Not Recovered/Not Resolved]
  - Application site pruritus [Not Recovered/Not Resolved]
  - Application site paraesthesia [Not Recovered/Not Resolved]
  - Drug administration error [Unknown]
  - Hypersensitivity [Not Recovered/Not Resolved]
  - Sensory disturbance [Not Recovered/Not Resolved]
  - Application site haemorrhage [Recovered/Resolved]
